FAERS Safety Report 20346790 (Version 1)
Quarter: 2022Q1

REPORT INFORMATION
  Report Type: Spontaneous
  Country: US (occurrence: US)
  Receive Date: 20220118
  Receipt Date: 20220118
  Transmission Date: 20220424
  Serious: Yes (Death)
  Sender: FDA-Public Use
  Company Number: US-VERTEX PHARMACEUTICALS-2022-000521

PATIENT
  Age: 39 Year
  Sex: Female

DRUGS (10)
  1. TRIKAFTA [Suspect]
     Active Substance: ELEXACAFTOR\IVACAFTOR\TEZACAFTOR
     Indication: Cystic fibrosis
     Dosage: BID
     Route: 048
     Dates: start: 20200624, end: 20220105
  2. LANTUS [Concomitant]
     Active Substance: INSULIN GLARGINE
  3. KITABIS PAK [Concomitant]
     Active Substance: TOBRAMYCIN
  4. PULMOZYME [Concomitant]
     Active Substance: DORNASE ALFA
  5. ZENPEP [Concomitant]
     Active Substance: PANCRELIPASE AMYLASE\PANCRELIPASE LIPASE\PANCRELIPASE PROTEASE
  6. OMEPRAZOLE [Concomitant]
     Active Substance: OMEPRAZOLE
  7. AZITHROMYCIN [Concomitant]
     Active Substance: AZITHROMYCIN
  8. FERROUS SULFATE [Concomitant]
     Active Substance: FERROUS SULFATE
  9. SODIUM CHLORIDE [Concomitant]
     Active Substance: SODIUM CHLORIDE
     Route: 055
  10. ALBUTEROL SULFATE [Concomitant]
     Active Substance: ALBUTEROL SULFATE

REACTIONS (1)
  - Cystic fibrosis [Fatal]

NARRATIVE: CASE EVENT DATE: 20220105
